FAERS Safety Report 25027276 (Version 4)
Quarter: 2025Q2

REPORT INFORMATION
  Report Type: Spontaneous
  Country: US (occurrence: US)
  Receive Date: 20250301
  Receipt Date: 20250415
  Transmission Date: 20250716
  Serious: Yes (Other)
  Sender: SANOFI AVENTIS
  Company Number: US-SA-2025SA053700

PATIENT
  Age: 59 Year
  Sex: Male
  Weight: 120.64 kg

DRUGS (29)
  1. DUPIXENT [Suspect]
     Active Substance: DUPILUMAB
     Indication: Dermatitis atopic
     Dosage: 300 MG, QOW
     Route: 058
  2. DUPIXENT [Suspect]
     Active Substance: DUPILUMAB
     Indication: Eczema
  3. DILTIAZEM [Concomitant]
     Active Substance: DILTIAZEM
  4. DIVALPROEX SODIUM [Concomitant]
     Active Substance: DIVALPROEX SODIUM
  5. OZEMPIC [Concomitant]
     Active Substance: SEMAGLUTIDE
  6. CEVIMELINE [Concomitant]
     Active Substance: CEVIMELINE
  7. LEVOTHYROXINE SODIUM [Concomitant]
     Active Substance: LEVOTHYROXINE SODIUM
  8. TAMSULOSIN [Concomitant]
     Active Substance: TAMSULOSIN
  9. OXYCONTIN [Concomitant]
     Active Substance: OXYCODONE HYDROCHLORIDE
  10. XARELTO [Concomitant]
     Active Substance: RIVAROXABAN
  11. AMITRIPTYLINE HYDROCHLORIDE [Concomitant]
     Active Substance: AMITRIPTYLINE HYDROCHLORIDE
  12. TIZANIDINE [Concomitant]
     Active Substance: TIZANIDINE
  13. VITAMIN D2 [Concomitant]
     Active Substance: ERGOCALCIFEROL
  14. GEMTESA [Concomitant]
     Active Substance: VIBEGRON
  15. TELMISARTAN [Concomitant]
     Active Substance: TELMISARTAN
  16. ZOLPIDEM TARTRATE [Concomitant]
     Active Substance: ZOLPIDEM TARTRATE
  17. JARDIANCE [Concomitant]
     Active Substance: EMPAGLIFLOZIN
  18. NALOXONE HCL [Concomitant]
     Active Substance: NALOXONE HYDROCHLORIDE
  19. AMLODIPINE BESYLATE [Concomitant]
     Active Substance: AMLODIPINE BESYLATE
  20. LEQVIO [Concomitant]
     Active Substance: INCLISIRAN SODIUM
  21. HYDROXYZINE HYDROCHLORIDE [Concomitant]
     Active Substance: HYDROXYZINE HYDROCHLORIDE
  22. CYANOCOBALAMIN [Concomitant]
     Active Substance: CYANOCOBALAMIN
  23. OXYCODONE HYDROCHLORIDE [Concomitant]
     Active Substance: OXYCODONE HYDROCHLORIDE
  24. OLMESARTAN MEDOXOMIL [Concomitant]
     Active Substance: OLMESARTAN MEDOXOMIL
  25. OXCARBAZEPINE [Concomitant]
     Active Substance: OXCARBAZEPINE
  26. UBRELVY [Concomitant]
     Active Substance: UBROGEPANT
  27. CLOPIDOGREL [Concomitant]
     Active Substance: CLOPIDOGREL BISULFATE
  28. BRIVIACT [Concomitant]
     Active Substance: BRIVARACETAM
  29. ASPIRIN [Concomitant]
     Active Substance: ASPIRIN

REACTIONS (4)
  - Epilepsy [Unknown]
  - Skin burning sensation [Unknown]
  - Insomnia [Unknown]
  - Pruritus [Unknown]
